FAERS Safety Report 4909223-6 (Version None)
Quarter: 2006Q1

REPORT INFORMATION
  Report Type: 
  Country: None (occurrence: None)
  Receive Date: 20060210
  Receipt Date: 20060210
  Transmission Date: 20060701
  Serious: Yes (Other)
  Sender: FDA-Public Use
  Company Number: None

PATIENT
  Age: 54 Year
  Sex: Female
  Weight: 47.6277 kg

DRUGS (1)
  1. VIVELLE-DOT [Suspect]
     Indication: MENOPAUSE
     Dosage: ONE PATCH  TWICE/WEEK  TRANSDERMAL
     Route: 062
     Dates: start: 20050515, end: 20060119

REACTIONS (3)
  - ANXIETY [None]
  - BREAST PAIN [None]
  - OVERDOSE [None]
